FAERS Safety Report 20231558 (Version 1)
Quarter: 2021Q4

REPORT INFORMATION
  Report Type: Spontaneous
  Country: US (occurrence: US)
  Receive Date: 20211227
  Receipt Date: 20211227
  Transmission Date: 20220304
  Serious: No
  Sender: FDA-Public Use
  Company Number: US-TARO-2021TAR00480

PATIENT

DRUGS (1)
  1. HYDROCORTISONE [Suspect]
     Active Substance: HYDROCORTISONE
     Indication: Exposure to toxic agent
     Dosage: ONLY APPLIED IT TWICE
     Route: 061

REACTIONS (1)
  - Application site discolouration [Unknown]
